FAERS Safety Report 16763782 (Version 1)
Quarter: 2019Q3

REPORT INFORMATION
  Report Type: Spontaneous
  Country: US (occurrence: US)
  Receive Date: 20190902
  Receipt Date: 20190902
  Transmission Date: 20191005
  Serious: Yes (Other)
  Sender: FDA-Public Use
  Company Number: US-B.I. PHARMACEUTICALS,INC./RIDGEFIELD-2019-BI-035235

PATIENT
  Sex: Female

DRUGS (1)
  1. JARDIANCE [Suspect]
     Active Substance: EMPAGLIFLOZIN
     Indication: TYPE 2 DIABETES MELLITUS
     Route: 048
     Dates: start: 20180117

REACTIONS (5)
  - Skin necrosis [Unknown]
  - Acute kidney injury [Unknown]
  - Fournier^s gangrene [Unknown]
  - Sepsis [Unknown]
  - Vulval abscess [Unknown]

NARRATIVE: CASE EVENT DATE: 20180417
